FAERS Safety Report 5047435-4 (Version None)
Quarter: 2006Q3

REPORT INFORMATION
  Report Type: 
  Country: None (occurrence: None)
  Receive Date: 20060710
  Receipt Date: 20060710
  Transmission Date: 20061208
  Serious: Yes (Other)
  Sender: FDA-Public Use
  Company Number: None

PATIENT
  Age: 72 Year
  Sex: Female
  Weight: 56.6996 kg

DRUGS (2)
  1. REVLIMID [Suspect]
     Indication: MULTIPLE MYELOMA
     Dosage: 2 CAPSULES  DAILY X 21/28 DAYS PO
     Route: 048
     Dates: start: 20060320, end: 20060517
  2. REVLIMID [Suspect]
     Indication: MULTIPLE MYELOMA
     Dosage: 1 CAPSULE  DAILY X 21/28 DAYS PO
     Route: 048
     Dates: start: 20060320, end: 20060517

REACTIONS (1)
  - PANCYTOPENIA [None]
